FAERS Safety Report 6695790-1 (Version None)
Quarter: 2010Q2

REPORT INFORMATION
  Report Type: 
  Country: None (occurrence: None)
  Receive Date: 20100426
  Receipt Date: 20100421
  Transmission Date: 20101027
  Serious: Yes (Other)
  Sender: FDA-Public Use
  Company Number: US-BAYER-201020184NA

PATIENT
  Age: 62 Year
  Sex: Male

DRUGS (1)
  1. BETASERON [Suspect]
     Indication: SECONDARY PROGRESSIVE MULTIPLE SCLEROSIS
     Dosage: TOTAL DAILY DOSE: 8 MIU
     Route: 058
     Dates: start: 19940913

REACTIONS (4)
  - ABDOMINAL MASS [None]
  - INJECTION SITE NECROSIS [None]
  - STAPHYLOCOCCAL INFECTION [None]
  - STAPHYLOCOCCAL OSTEOMYELITIS [None]
